FAERS Safety Report 11121287 (Version 3)
Quarter: 2015Q2

REPORT INFORMATION
  Report Type: Report from Study
  Country: CH (occurrence: CH)
  Receive Date: 20150519
  Receipt Date: 20150622
  Transmission Date: 20150821
  Serious: Yes (Hospitalization, Other)
  Sender: FDA-Public Use
  Company Number: CH-ABBVIE-15P-151-1393330-00

PATIENT

DRUGS (1)
  1. DUODOPA [Suspect]
     Active Substance: CARBIDOPA\LEVODOPA
     Indication: PARKINSON^S DISEASE
     Dosage: CR DAY: 3.8ML/H.CR NIGHT: 2.8ML/H
     Route: 050
     Dates: start: 20100303

REACTIONS (3)
  - Bile duct stone [Recovering/Resolving]
  - Decreased appetite [Unknown]
  - Fatigue [Unknown]
